FAERS Safety Report 9645258 (Version 1)
Quarter: 2013Q4

REPORT INFORMATION
  Report Type: Spontaneous
  Country: US (occurrence: None)
  Receive Date: 20131023
  Receipt Date: 20131023
  Transmission Date: 20140711
  Serious: Yes (Hospitalization, Other)
  Sender: FDA-Public Use
  Company Number: SYM-2013-09699

PATIENT
  Sex: Female

DRUGS (2)
  1. WELLBUTRIN (BUPROPION HYDROCHLORIDE) [Suspect]
     Indication: DEPRESSION
     Route: 064
  2. WELLBUTRIN (BUPROPION HYDROCHLORIDE) [Suspect]
     Indication: ANXIETY
     Route: 064

REACTIONS (4)
  - Caesarean section [None]
  - Breech presentation [None]
  - Hyperinsulinaemia [None]
  - Foetal exposure during pregnancy [None]
